FAERS Safety Report 7095272-1 (Version None)
Quarter: 2010Q4

REPORT INFORMATION
  Report Type: 
  Country: None (occurrence: None)
  Receive Date: 20101102
  Receipt Date: 20101021
  Transmission Date: 20110411
  Serious: Yes (Life-Threatening, Hospitalization, Other)
  Sender: FDA-Public Use
  Company Number: 1000016547

PATIENT
  Age: 44 Year
  Sex: Female
  Weight: 86 kg

DRUGS (2)
  1. ESCITALOPRAM [Suspect]
     Dosage: (240 MG,ONCE),ORAL
     Route: 048
     Dates: start: 20100927, end: 20100927
  2. SEROQUEL [Suspect]
     Dosage: (12000 MG,ONCE),ORAL
     Route: 048
     Dates: start: 20100927, end: 20100927

REACTIONS (7)
  - CONVULSION [None]
  - GASTROINTESTINAL SOUNDS ABNORMAL [None]
  - HYPOTENSION [None]
  - MULTIPLE DRUG OVERDOSE INTENTIONAL [None]
  - SOPOR [None]
  - SUICIDE ATTEMPT [None]
  - TACHYCARDIA [None]
